FAERS Safety Report 6062060-4 (Version None)
Quarter: 2009Q1

REPORT INFORMATION
  Report Type: 
  Country: None (occurrence: None)
  Receive Date: 20090202
  Receipt Date: 20090129
  Transmission Date: 20090719
  Serious: No
  Sender: FDA-Public Use
  Company Number: GR-BRISTOL-MYERS SQUIBB COMPANY-14471619

PATIENT
  Age: 68 Year
  Sex: Male

DRUGS (2)
  1. PRAVACHOL [Suspect]
     Indication: ARTERIOSCLEROSIS
     Dates: start: 20081229, end: 20090111
  2. ANAFRANIL [Concomitant]
     Indication: OBSESSIVE-COMPULSIVE DISORDER
     Dosage: CLOMIPRAMINE HCL CAPS 75MG.
     Route: 048

REACTIONS (3)
  - HEADACHE [None]
  - VISION BLURRED [None]
  - VOMITING [None]
